FAERS Safety Report 10971500 (Version 1)
Quarter: 2015Q1

REPORT INFORMATION
  Report Type: Spontaneous
  Country: CZ (occurrence: CZ)
  Receive Date: 20150331
  Receipt Date: 20150331
  Transmission Date: 20150721
  Serious: Yes (Hospitalization, Other)
  Sender: FDA-Public Use
  Company Number: CZ-GLAXOSMITHKLINE INC.-CZ2015GSK039223

PATIENT
  Age: 49 Year
  Sex: Female

DRUGS (2)
  1. LAMIVUDINE. [Suspect]
     Active Substance: LAMIVUDINE
     Indication: HEPATITIS B
     Dosage: UNK
     Dates: start: 2001
  2. RITUXIMAB [Suspect]
     Active Substance: RITUXIMAB
     Indication: LYMPHOPLASMACYTOID LYMPHOMA/IMMUNOCYTOMA
     Dosage: UNK UNK, 13 CYC
     Dates: start: 200806, end: 200908

REACTIONS (8)
  - Hepatic function abnormal [Unknown]
  - Drug resistance [Unknown]
  - Encephalopathy [Unknown]
  - Transplant rejection [Unknown]
  - Acute hepatic failure [Recovering/Resolving]
  - Transplant dysfunction [Unknown]
  - Hepatitis B [Recovered/Resolved]
  - Hepatic necrosis [Unknown]

NARRATIVE: CASE EVENT DATE: 20091001
